FAERS Safety Report 17996361 (Version 2)
Quarter: 2020Q4

REPORT INFORMATION
  Report Type: Report from Study
  Country: DE (occurrence: DE)
  Receive Date: 20200708
  Receipt Date: 20201117
  Transmission Date: 20210113
  Serious: Yes (Death, Hospitalization, Other)
  Sender: FDA-Public Use
  Company Number: DE-EMD SERONO-9173081

PATIENT
  Sex: Female

DRUGS (1)
  1. REBIF [Suspect]
     Active Substance: INTERFERON BETA-1A
     Indication: MULTIPLE SCLEROSIS
     Route: 058
     Dates: end: 202005

REACTIONS (3)
  - Progressive multiple sclerosis [Unknown]
  - Encephalomyelitis [Unknown]
  - Autoimmune disorder [Fatal]

NARRATIVE: CASE EVENT DATE: 2004
